FAERS Safety Report 5187845-8 (Version None)
Quarter: 2006Q4

REPORT INFORMATION
  Report Type: 
  Country: None (occurrence: None)
  Receive Date: 20061221
  Receipt Date: 20060831
  Transmission Date: 20070319
  Serious: No
  Sender: FDA-Public Use
  Company Number: US-GLAXOSMITHKLINE-A0618768A

PATIENT
  Sex: Female

DRUGS (4)
  1. AVANDARYL [Suspect]
     Route: 048
     Dates: start: 20060825
  2. AMOXICILLIN + CLAVULANATE K [Concomitant]
     Dates: end: 20060829
  3. PSEUDOEPHEDRINE HCL [Concomitant]
     Dates: end: 20060827
  4. Q [Concomitant]
     Dates: end: 20060830

REACTIONS (2)
  - DIARRHOEA [None]
  - SLUGGISHNESS [None]
